FAERS Safety Report 7330410-4 (Version None)
Quarter: 2011Q1

REPORT INFORMATION
  Report Type: 
  Country: None (occurrence: None)
  Receive Date: 20110304
  Receipt Date: 20110223
  Transmission Date: 20110831
  Serious: No
  Sender: FDA-Public Use
  Company Number: US-BIOGENIDEC-2010BI044738

PATIENT
  Sex: Female

DRUGS (2)
  1. TYSABRI [Suspect]
     Route: 042
     Dates: start: 20080611, end: 20080912
  2. TYSABRI [Suspect]
     Indication: MULTIPLE SCLEROSIS
     Route: 042
     Dates: start: 20101014, end: 20110214

REACTIONS (7)
  - OROPHARYNGEAL PAIN [None]
  - PYREXIA [None]
  - INFLUENZA [None]
  - VIRAL UPPER RESPIRATORY TRACT INFECTION [None]
  - COUGH [None]
  - SINUS CONGESTION [None]
  - DRUG INEFFECTIVE [None]
